FAERS Safety Report 6837775-8 (Version None)
Quarter: 2010Q3

REPORT INFORMATION
  Report Type: 
  Country: None (occurrence: None)
  Receive Date: 20100709
  Receipt Date: 20100629
  Transmission Date: 20110219
  Serious: Yes (Other)
  Sender: FDA-Public Use
  Company Number: 10TW001245

PATIENT
  Age: 47 Year
  Sex: Male
  Weight: 48.5 kg

DRUGS (3)
  1. VALPROIC ACID [Suspect]
     Indication: CONVULSION
     Dosage: 1200 MG, SINGLE, 400 MG, Q 6HR, INTRAVENOUS
     Route: 042
     Dates: start: 20080605, end: 20080606
  2. CEFTRIAXONE [Concomitant]
  3. VANCOMYCIN [Concomitant]

REACTIONS (10)
  - BLOOD LACTIC ACID INCREASED [None]
  - BLOOD PYRUVIC ACID INCREASED [None]
  - CSF GLUCOSE INCREASED [None]
  - CSF PROTEIN INCREASED [None]
  - CSF WHITE BLOOD CELL COUNT INCREASED [None]
  - DEAFNESS NEUROSENSORY [None]
  - DIABETES MELLITUS INADEQUATE CONTROL [None]
  - EPILEPSY [None]
  - MELAS SYNDROME [None]
  - RED BLOOD CELLS CSF POSITIVE [None]
